FAERS Safety Report 7513601-9 (Version None)
Quarter: 2011Q2

REPORT INFORMATION
  Report Type: 
  Country: None (occurrence: None)
  Receive Date: 20110531
  Receipt Date: 20110518
  Transmission Date: 20111010
  Serious: Yes (Other)
  Sender: FDA-Public Use
  Company Number: US-MYLANLABS-2011S1010648

PATIENT
  Age: 16 Year
  Sex: Male

DRUGS (6)
  1. CEFOXITIN [Suspect]
     Indication: POST PROCEDURAL INFECTION
     Dosage: 12 G MIXED WITH BONE CEMENT
     Route: 050
  2. TOBRAMYCIN [Suspect]
     Indication: POST PROCEDURAL INFECTION
     Dosage: 7.2 G MIXED WITH BONE CEMENT
     Route: 050
  3. KETOROLAC TROMETHAMINE [Concomitant]
     Indication: PAIN
     Route: 065
  4. VANCOMYCIN [Suspect]
     Route: 042
  5. VANCOMYCIN [Suspect]
     Indication: POST PROCEDURAL INFECTION
     Dosage: 8 G MIXED WITH BONE CEMENT
     Route: 050
  6. PIPERACILLIN AND TAZOBACTAM [Concomitant]
     Indication: POST PROCEDURAL INFECTION
     Route: 042

REACTIONS (2)
  - RENAL FAILURE ACUTE [None]
  - TOXICITY TO VARIOUS AGENTS [None]
